FAERS Safety Report 25038749 (Version 1)
Quarter: 2025Q1

REPORT INFORMATION
  Report Type: Spontaneous
  Country: PL (occurrence: PL)
  Receive Date: 20250304
  Receipt Date: 20250304
  Transmission Date: 20250409
  Serious: Yes (Other)
  Sender: ABBVIE
  Company Number: PL-JNJFOC-20250271231

PATIENT
  Age: 76 Year
  Sex: Female

DRUGS (5)
  1. VENETOCLAX [Suspect]
     Active Substance: VENETOCLAX
     Indication: Chronic lymphocytic leukaemia
     Route: 048
     Dates: start: 20240627
  2. BISOPROLOL [Concomitant]
     Active Substance: BISOPROLOL
     Indication: Product used for unknown indication
  3. IMBRUVICA [Suspect]
     Active Substance: IBRUTINIB
     Indication: Chronic lymphocytic leukaemia
     Route: 048
     Dates: start: 20240627
  4. Tialorid [Concomitant]
     Indication: Hypertension
  5. LISINOPRIL [Concomitant]
     Active Substance: LISINOPRIL
     Indication: Hypertension

REACTIONS (6)
  - Chronic lymphocytic leukaemia [Unknown]
  - Lymphadenopathy [Unknown]
  - Asthenia [Unknown]
  - Ventricular arrhythmia [Unknown]
  - Night sweats [Unknown]
  - Atrial fibrillation [Unknown]
